FAERS Safety Report 24196633 (Version 1)
Quarter: 2024Q3

REPORT INFORMATION
  Report Type: Report from Study
  Country: ZA (occurrence: ZA)
  Receive Date: 20240810
  Receipt Date: 20240810
  Transmission Date: 20241017
  Serious: Yes (Other)
  Sender: ROCHE
  Company Number: ZA-ROCHE-10000052435

PATIENT
  Sex: Male

DRUGS (2)
  1. AVASTIN [Suspect]
     Active Substance: BEVACIZUMAB
     Indication: Macular degeneration
     Route: 050
     Dates: start: 2021
  2. EYLEA [Concomitant]
     Active Substance: AFLIBERCEPT
     Route: 050
     Dates: start: 2024

REACTIONS (2)
  - Off label use [Unknown]
  - Blindness [Unknown]
